FAERS Safety Report 4598039-9 (Version None)
Quarter: 2005Q1

REPORT INFORMATION
  Report Type: 
  Country: None (occurrence: None)
  Receive Date: 20050207
  Receipt Date: 20040227
  Transmission Date: 20050727
  Serious: Yes (Hospitalization)
  Sender: FDA-Public Use
  Company Number: MEDI-0001691

PATIENT
  Age: 58 Year
  Sex: Female
  Weight: 61.6892 kg

DRUGS (7)
  1. ETHYOL [Suspect]
     Indication: RADIOTHERAPY
     Dosage: 500 MG, SUBCUTANEOUS
     Route: 058
     Dates: start: 20040219, end: 20040225
  2. RADIATION THERAPY [Concomitant]
  3. SYNTHROID [Concomitant]
  4. VITAMINS [Concomitant]
  5. ZYRTEC [Concomitant]
  6. AMBIEN [Concomitant]
  7. NEXIUM [Concomitant]

REACTIONS (2)
  - NAUSEA [None]
  - VOMITING [None]
